FAERS Safety Report 9101304 (Version 1)
Quarter: 2013Q1

REPORT INFORMATION
  Report Type: Spontaneous
  Country: US (occurrence: US)
  Receive Date: 20130218
  Receipt Date: 20130218
  Transmission Date: 20140127
  Serious: Yes (Hospitalization)
  Sender: FDA-Public Use
  Company Number: US-GILEAD-2013-0069913

PATIENT
  Sex: Female

DRUGS (15)
  1. LETAIRIS [Suspect]
     Indication: PRODUCT USED FOR UNKNOWN INDICATION
     Dosage: 10 MG, UNK
     Dates: start: 20071116
  2. ADCIRCA [Concomitant]
  3. DEPO-PROVERA [Concomitant]
  4. KETOROLAC TROMETHAMINE [Concomitant]
  5. ROZEREM [Concomitant]
  6. CLONAZEPAM [Concomitant]
  7. NORVASC [Concomitant]
  8. PREDNISONE [Concomitant]
  9. FLUOXETINE [Concomitant]
  10. HYDROXYCHLOROQUINE [Concomitant]
  11. IRBESARTAN [Concomitant]
  12. NEXIUM                             /01479302/ [Concomitant]
  13. AVAPRO [Concomitant]
  14. TRAMADOL [Concomitant]
  15. NORVASC [Concomitant]

REACTIONS (1)
  - Lung disorder [Unknown]
